FAERS Safety Report 25432088 (Version 1)
Quarter: 2025Q2

REPORT INFORMATION
  Report Type: Spontaneous
  Country: GB (occurrence: GB)
  Receive Date: 20250613
  Receipt Date: 20250613
  Transmission Date: 20250716
  Serious: Yes (Other)
  Sender: RANBAXY
  Company Number: GB-MHRA-MED-202505291521119620-FYJDZ

PATIENT
  Age: 39 Year
  Sex: Female
  Weight: 76 kg

DRUGS (2)
  1. LORATADINE [Suspect]
     Active Substance: LORATADINE
     Indication: Dermatitis allergic
     Route: 065
     Dates: end: 20240428
  2. SERTRALINE [Concomitant]
     Active Substance: SERTRALINE HYDROCHLORIDE
     Indication: Anxiety
     Route: 065

REACTIONS (1)
  - Brain fog [Recovered/Resolved]

NARRATIVE: CASE EVENT DATE: 20240527
